FAERS Safety Report 4771960-4 (Version None)
Quarter: 2005Q3

REPORT INFORMATION
  Report Type: 
  Country: None (occurrence: None)
  Receive Date: 20050916
  Receipt Date: 20050908
  Transmission Date: 20060218
  Serious: Yes (Other)
  Sender: FDA-Public Use
  Company Number: US-KINGPHARMUSA00001-K200501186

PATIENT
  Age: 62 Year
  Sex: Female

DRUGS (2)
  1. ALTACE [Suspect]
     Dosage: 1.25 MG, QD
     Route: 048
     Dates: start: 20030101, end: 20040101
  2. ALTACE [Suspect]
     Dosage: 2.5 MG, QD
     Route: 048
     Dates: start: 20040101

REACTIONS (5)
  - CATARACT [None]
  - EYE DISORDER [None]
  - PAIN IN EXTREMITY [None]
  - SHOULDER PAIN [None]
  - VISION BLURRED [None]
